FAERS Safety Report 17187314 (Version 4)
Quarter: 2020Q1

REPORT INFORMATION
  Report Type: Report from Study
  Country: None (occurrence: BR)
  Receive Date: 20191220
  Receipt Date: 20200204
  Transmission Date: 20200409
  Serious: Yes (Hospitalization)
  Sender: FDA-Public Use
  Company Number: BR-ABBVIE-19P-020-3182689-00

PATIENT
  Age: 81 Year
  Sex: Male

DRUGS (41)
  1. NORMAL SALINE SOLUTION (0.9% SODIUM CHLORIDE) [Concomitant]
     Route: 042
     Dates: start: 20180209, end: 20180211
  2. NORMAL SALINE SOLUTION (0.9% SODIUM CHLORIDE) [Concomitant]
     Route: 042
     Dates: start: 20180328, end: 20180328
  3. VENETOCLAX. [Suspect]
     Active Substance: VENETOCLAX
     Indication: ACUTE MYELOID LEUKAEMIA
     Route: 048
     Dates: start: 20180307, end: 20180307
  4. VENETOCLAX. [Suspect]
     Active Substance: VENETOCLAX
     Route: 048
     Dates: start: 20180308, end: 20180308
  5. ZOLPIDEM [Concomitant]
     Active Substance: ZOLPIDEM TARTRATE
     Indication: INSOMNIA
     Dosage: 5 TO 10 MG PER AS NECESSARY
     Route: 048
     Dates: start: 2017, end: 20191205
  6. BISOPROLOL [Concomitant]
     Active Substance: BISOPROLOL
     Indication: ISCHAEMIC HEART DISEASE PROPHYLAXIS
     Route: 048
     Dates: start: 20180305, end: 20180307
  7. BISOPROLOL [Concomitant]
     Active Substance: BISOPROLOL
     Indication: CARDIOVASCULAR EVENT PROPHYLAXIS
     Route: 048
     Dates: start: 20180308, end: 20180309
  8. BROMOPRIDE [Concomitant]
     Active Substance: BROMOPRIDE
     Indication: PROPHYLAXIS OF NAUSEA AND VOMITING
     Route: 042
     Dates: start: 20191203, end: 20191205
  9. NORMAL SALINE SOLUTION (0.9% SODIUM CHLORIDE) [Concomitant]
     Route: 042
     Dates: start: 20180529, end: 20180530
  10. NORMAL SALINE SOLUTION (0.9% SODIUM CHLORIDE) [Concomitant]
     Route: 042
     Dates: start: 20180602, end: 20180602
  11. AZACITIDINE. [Suspect]
     Active Substance: AZACITIDINE
     Indication: ACUTE MYELOID LEUKAEMIA
     Dosage: DAYS 1-7 OF 28 DAY CYCLE
     Route: 058
     Dates: start: 20180307, end: 20180627
  12. ENALAPRIL [Concomitant]
     Active Substance: ENALAPRIL
     Indication: CARDIOVASCULAR EVENT PROPHYLAXIS
     Route: 048
     Dates: start: 20180328, end: 20180426
  13. ENALAPRIL [Concomitant]
     Active Substance: ENALAPRIL
     Route: 048
     Dates: start: 20180427, end: 20191204
  14. OMEPRAZOLE. [Concomitant]
     Active Substance: OMEPRAZOLE
     Route: 042
     Dates: start: 20180328, end: 20180425
  15. NORMAL SALINE SOLUTION (0.9% SODIUM CHLORIDE) [Concomitant]
     Route: 042
     Dates: start: 20180530, end: 20180531
  16. ISOSORBIDE. [Concomitant]
     Active Substance: ISOSORBIDE
     Indication: ANGINA UNSTABLE
     Route: 048
     Dates: start: 20180328
  17. ALLOPURINOL. [Concomitant]
     Active Substance: ALLOPURINOL
     Indication: PROPHYLAXIS
     Route: 048
     Dates: start: 20180305, end: 20180420
  18. 5% DEXTROSE IN WATER [Concomitant]
     Indication: PROPHYLAXIS
     Route: 042
     Dates: start: 20180509, end: 20180510
  19. CRESTOR [Concomitant]
     Active Substance: ROSUVASTATIN CALCIUM
     Indication: HYPERLIPIDAEMIA
     Route: 048
     Dates: start: 2017
  20. BISOPROLOL [Concomitant]
     Active Substance: BISOPROLOL
     Route: 048
     Dates: start: 20180310, end: 20180314
  21. BISOPROLOL [Concomitant]
     Active Substance: BISOPROLOL
     Route: 048
     Dates: start: 20180315
  22. POTASSIUM CHLORIDE. [Concomitant]
     Active Substance: POTASSIUM CHLORIDE
     Route: 048
     Dates: start: 20180414, end: 20180414
  23. NORMAL SALINE SOLUTION (0.9% SODIUM CHLORIDE) [Concomitant]
     Route: 042
     Dates: start: 20180306, end: 20180308
  24. NORMAL SALINE SOLUTION (0.9% SODIUM CHLORIDE) [Concomitant]
     Route: 042
     Dates: start: 20180603, end: 20180604
  25. VENETOCLAX. [Suspect]
     Active Substance: VENETOCLAX
     Route: 048
     Dates: start: 20180309, end: 20180402
  26. VENETOCLAX. [Suspect]
     Active Substance: VENETOCLAX
     Route: 048
     Dates: start: 20180430
  27. BISOPROLOL [Concomitant]
     Active Substance: BISOPROLOL
     Route: 048
     Dates: start: 20180224, end: 20180226
  28. BROMOPRIDE [Concomitant]
     Active Substance: BROMOPRIDE
     Indication: PROPHYLAXIS OF NAUSEA AND VOMITING
     Route: 042
     Dates: start: 20180309, end: 20180309
  29. OMEPRAZOLE. [Concomitant]
     Active Substance: OMEPRAZOLE
     Route: 042
     Dates: start: 20191203, end: 20191210
  30. NORMAL SALINE SOLUTION (0.9% SODIUM CHLORIDE) [Concomitant]
     Route: 042
     Dates: start: 20180510, end: 20180511
  31. POSACONAZOLE [Concomitant]
     Active Substance: POSACONAZOLE
     Indication: ANTIFUNGAL PROPHYLAXIS
     Route: 048
     Dates: start: 20190817, end: 20191223
  32. POTASSIUM CHLORIDE. [Concomitant]
     Active Substance: POTASSIUM CHLORIDE
     Indication: HYPOKALAEMIA
     Route: 048
     Dates: start: 20180412, end: 20180417
  33. OMEPRAZOLE. [Concomitant]
     Active Substance: OMEPRAZOLE
     Route: 048
     Dates: start: 20180509, end: 201806
  34. NORMAL SALINE SOLUTION (0.9% SODIUM CHLORIDE) [Concomitant]
     Indication: PROPHYLAXIS
     Route: 042
     Dates: start: 20180220, end: 20180226
  35. NORMAL SALINE SOLUTION (0.9% SODIUM CHLORIDE) [Concomitant]
     Route: 042
     Dates: start: 20180311, end: 20180313
  36. AZACITIDINE. [Suspect]
     Active Substance: AZACITIDINE
     Dosage: DAYS 1-7 OF 28 DAY CYCLE
     Route: 058
     Dates: start: 20180814
  37. FILGRASTIM [Concomitant]
     Active Substance: FILGRASTIM
     Indication: NEUTROPENIA
     Route: 058
     Dates: start: 20180407, end: 20180420
  38. FILGRASTIM [Concomitant]
     Active Substance: FILGRASTIM
     Dosage: ONCE A WEEK, AS NEEDED
     Route: 058
     Dates: start: 20181112
  39. ISOSORBIDE. [Concomitant]
     Active Substance: ISOSORBIDE
     Indication: CARDIOVASCULAR EVENT PROPHYLAXIS
     Route: 060
     Dates: start: 20180309, end: 20180309
  40. POTASSIUM CHLORIDE. [Concomitant]
     Active Substance: POTASSIUM CHLORIDE
     Route: 048
     Dates: start: 20191204, end: 20191210
  41. OMEPRAZOLE. [Concomitant]
     Active Substance: OMEPRAZOLE
     Indication: GASTRITIS PROPHYLAXIS
     Route: 042
     Dates: start: 20180310, end: 20180313

REACTIONS (3)
  - Diarrhoea [Recovered/Resolved]
  - Delirium [Recovered/Resolved]
  - Pneumonia [Recovered/Resolved]

NARRATIVE: CASE EVENT DATE: 20191203
